FAERS Safety Report 9468886 (Version 2)
Quarter: 2013Q4

REPORT INFORMATION
  Report Type: Spontaneous
  Country: US (occurrence: US)
  Receive Date: 20130821
  Receipt Date: 20131213
  Transmission Date: 20140711
  Serious: No
  Sender: FDA-Public Use
  Company Number: US-009507513-1308USA009551

PATIENT
  Sex: Female
  Weight: 68.27 kg

DRUGS (4)
  1. MIRALAX [Suspect]
     Indication: PRODUCT USED FOR UNKNOWN INDICATION
     Dosage: 17 G, QD
     Route: 048
     Dates: start: 201307
  2. MIRALAX [Suspect]
     Indication: CONSTIPATION PROPHYLAXIS
  3. XATRAL [Suspect]
     Indication: ANTICOAGULANT THERAPY
  4. ELIQUIS [Concomitant]
     Indication: ATRIAL FIBRILLATION
     Dosage: UNK, UNKNOWN

REACTIONS (3)
  - Haematochezia [Not Recovered/Not Resolved]
  - Faeces discoloured [Not Recovered/Not Resolved]
  - Incorrect drug administration duration [Unknown]
